FAERS Safety Report 17396976 (Version 2)
Quarter: 2020Q1

REPORT INFORMATION
  Report Type: Report from Study
  Country: ES (occurrence: ES)
  Receive Date: 20200210
  Receipt Date: 20200212
  Transmission Date: 20200409
  Serious: Yes (Other)
  Sender: FDA-Public Use
  Company Number: ES-PFIZER INC-2019300289

PATIENT
  Age: 37 Year
  Sex: Female

DRUGS (28)
  1. ACYCLOVIR [ACICLOVIR] [Concomitant]
     Active Substance: ACYCLOVIR
     Indication: PROPHYLAXIS
     Dosage: 200 MG, BID (EVERY 12 HOURS)
     Route: 065
     Dates: start: 20180611, end: 20180611
  2. PANTOPRAZOLE [Concomitant]
     Active Substance: PANTOPRAZOLE
     Dosage: 40 MG, DAILY
     Route: 065
     Dates: start: 20190806, end: 20190808
  3. PARACETAMOL [Concomitant]
     Active Substance: ACETAMINOPHEN
     Indication: PROPHYLAXIS
     Dosage: 1 G, TID
     Route: 065
     Dates: start: 20180611, end: 20180615
  4. CYCLOBENZAPRINE. [Concomitant]
     Active Substance: CYCLOBENZAPRINE
     Dosage: 10 MG, QD
     Route: 065
     Dates: start: 20171004
  5. CARBIMAZOL [Concomitant]
     Active Substance: CARBIMAZOLE
     Dosage: 20 MG, DAILY
     Route: 065
     Dates: start: 20190725
  6. FESOTERODINE [Suspect]
     Active Substance: FESOTERODINE
     Indication: URINARY TRACT INFECTION
     Dosage: 8 MG, QD
     Route: 065
     Dates: start: 20170608
  7. OMEPRAZOLE [OMEPRAZOLE SODIUM] [Concomitant]
     Active Substance: OMEPRAZOLE SODIUM
     Dosage: 20 MG, QD
     Route: 065
     Dates: start: 20171117
  8. DEXCHLORPHENIRAMINE [Concomitant]
     Active Substance: DEXCHLORPHENIRAMINE
     Indication: PROPHYLAXIS
     Dosage: 250 MG, TID (EVERY 8 HOURS)
     Route: 065
     Dates: start: 20180611, end: 20180615
  9. FAMPRIDINE [Concomitant]
     Active Substance: DALFAMPRIDINE
     Indication: MULTIPLE SCLEROSIS RELAPSE
     Dosage: 10 MG, Q12H
     Route: 065
     Dates: start: 20150812
  10. METHYLPREDNISOLONE. [Concomitant]
     Active Substance: METHYLPREDNISOLONE
     Dosage: 250 MG, UNK
     Dates: start: 20180614, end: 20180615
  11. MOMETASONE [Concomitant]
     Active Substance: MOMETASONE
     Indication: ASTHMA
     Dosage: 100 MG, QD
     Route: 065
     Dates: start: 20171218
  12. ALEMTUZUMAB [Suspect]
     Active Substance: ALEMTUZUMAB
     Dosage: UNK
  13. ALEMTUZUMAB [Suspect]
     Active Substance: ALEMTUZUMAB
     Indication: RELAPSING-REMITTING MULTIPLE SCLEROSIS
     Dosage: UNK
     Route: 041
     Dates: start: 20180611, end: 20180615
  14. ACYCLOVIR [ACICLOVIR] [Concomitant]
     Active Substance: ACYCLOVIR
     Dosage: 200 MG, 2X/DAY (EVERY 12 HOURS)
     Route: 065
     Dates: start: 20190806, end: 20190906
  15. BUDESONIDE. [Concomitant]
     Active Substance: BUDESONIDE
     Indication: ASTHMA
     Dosage: 2 DOSES 160 / 4.5 MCG QD
     Route: 065
     Dates: start: 20171218
  16. DULOXETINE. [Concomitant]
     Active Substance: DULOXETINE
     Dosage: 30 MG, QD
     Route: 065
     Dates: start: 20141218, end: 20191031
  17. METHYLPREDNISOLONE. [Concomitant]
     Active Substance: METHYLPREDNISOLONE
     Indication: PROPHYLAXIS
     Dosage: 1 G, QD
     Route: 065
     Dates: start: 20180611, end: 20180612
  18. METHYLPREDNISOLONE. [Concomitant]
     Active Substance: METHYLPREDNISOLONE
     Dosage: 500 MG, DAILY
     Route: 065
     Dates: start: 20190807, end: 20190807
  19. DEXCHLORPHENIRAMINE [Concomitant]
     Active Substance: DEXCHLORPHENIRAMINE
     Dosage: 5 MG, DAILY
     Route: 065
     Dates: start: 20190806, end: 20190808
  20. PARACETAMOL [Concomitant]
     Active Substance: ACETAMINOPHEN
     Dosage: 1 G, DAILY
     Route: 065
     Dates: start: 20190806, end: 20190808
  21. CARBIMAZOL [Concomitant]
     Active Substance: CARBIMAZOLE
     Indication: BASEDOW^S DISEASE
     Dosage: 40 MG, 3X/DAY(EVERY 8 HOURS)
     Route: 065
     Dates: start: 20190509, end: 20190725
  22. METHYLPREDNISOLONE. [Concomitant]
     Active Substance: METHYLPREDNISOLONE
     Dosage: 500 MG, QD
     Dates: start: 20180613, end: 20180613
  23. VALACYCLOVIR [Concomitant]
     Active Substance: VALACYCLOVIR HYDROCHLORIDE
     Indication: KERATITIS
     Dosage: 1 G, Q12H
     Route: 065
     Dates: start: 20180615
  24. CALCIUM [Concomitant]
     Active Substance: CALCIUM
     Dosage: 1.25 MG, Q12H
     Route: 065
     Dates: start: 20140326, end: 20190115
  25. METHYLPREDNISOLONE. [Concomitant]
     Active Substance: METHYLPREDNISOLONE
     Dosage: 1 G, DAILY
     Route: 065
     Dates: start: 20190806, end: 20190806
  26. METHYLPREDNISOLONE. [Concomitant]
     Active Substance: METHYLPREDNISOLONE
     Dosage: 250 MG, DAILY
     Route: 065
     Dates: start: 20190808, end: 20190808
  27. PANTOPRAZOLE [Concomitant]
     Active Substance: PANTOPRAZOLE
     Indication: PROPHYLAXIS
     Dosage: 400 MG, TID (EVERY 8 HOURS)
     Route: 065
     Dates: start: 20180611, end: 20180615
  28. LORATADINE D [Concomitant]
     Active Substance: LORATADINE\PSEUDOEPHEDRINE SULFATE
     Indication: ASTHMA
     Dosage: 10 MG, QD
     Route: 065
     Dates: start: 20171218

REACTIONS (10)
  - Urinary tract infection [Recovered/Resolved]
  - Urinary tract infection [Recovered/Resolved]
  - Dry mouth [Recovering/Resolving]
  - Diarrhoea [Recovered/Resolved]
  - Headache [Recovered/Resolved]
  - Urinary tract infection [Recovering/Resolving]
  - Tachycardia [Recovered/Resolved]
  - Pruritus [Recovered/Resolved]
  - Basedow^s disease [Recovering/Resolving]
  - Urticaria [Recovered/Resolved]

NARRATIVE: CASE EVENT DATE: 20180614
